FAERS Safety Report 19501462 (Version 1)
Quarter: 2021Q3

REPORT INFORMATION
  Report Type: Spontaneous
  Country: US (occurrence: US)
  Receive Date: 20210704
  Receipt Date: 20210704
  Transmission Date: 20211014
  Serious: Yes (Hospitalization, Disabling)
  Sender: FDA-Public Use
  Company Number: None

PATIENT
  Age: 80 Year
  Sex: Male

DRUGS (16)
  1. FUROSEMIDE. [Concomitant]
     Active Substance: FUROSEMIDE
  2. NITROSTAT [Concomitant]
     Active Substance: NITROGLYCERIN
  3. VITAMIN B12 [Concomitant]
     Active Substance: CYANOCOBALAMIN
  4. LATANOPROST. [Concomitant]
     Active Substance: LATANOPROST
  5. ASPIRIN. [Concomitant]
     Active Substance: ASPIRIN
  6. RHOPRESSA [Concomitant]
     Active Substance: NETARSUDIL MESYLATE
  7. IRON [Concomitant]
     Active Substance: IRON
  8. NINLARO [Suspect]
     Active Substance: IXAZOMIB CITRATE
     Indication: PLASMA CELL MYELOMA
     Route: 048
  9. VITAMIN D3 [Concomitant]
     Active Substance: CHOLECALCIFEROL
  10. POTASSIUM CHLORIDE. [Concomitant]
     Active Substance: POTASSIUM CHLORIDE
  11. MIDODRINE [Concomitant]
     Active Substance: MIDODRINE
  12. DEXAMETHASONE. [Concomitant]
     Active Substance: DEXAMETHASONE
  13. ALLOPURINOL. [Concomitant]
     Active Substance: ALLOPURINOL
  14. FINASTERIDE. [Concomitant]
     Active Substance: FINASTERIDE
  15. PRESERVISION AREDS 2 [Concomitant]
     Active Substance: MINERALS\VITAMINS
  16. IMODIUM [Concomitant]
     Active Substance: LOPERAMIDE HYDROCHLORIDE

REACTIONS (1)
  - Cardiac failure congestive [None]

NARRATIVE: CASE EVENT DATE: 20210619
